FAERS Safety Report 6276004-3 (Version None)
Quarter: 2009Q3

REPORT INFORMATION
  Report Type: 
  Country: None (occurrence: None)
  Receive Date: 20090720
  Receipt Date: 20090706
  Transmission Date: 20100115
  Serious: Yes (Hospitalization, Other)
  Sender: FDA-Public Use
  Company Number: A-NJ2007-17239

PATIENT
  Age: 66 Year
  Sex: Female

DRUGS (2)
  1. TRACLEER [Suspect]
     Indication: PULMONARY HYPERTENSION
     Dosage: 125 MG, BID, ORAL
     Route: 048
     Dates: start: 20070704
  2. REVATIO [Concomitant]

REACTIONS (19)
  - ANAEMIA [None]
  - BACK PAIN [None]
  - BLOOD GLUCOSE INCREASED [None]
  - CHEST DISCOMFORT [None]
  - CONTUSION [None]
  - DYSPNOEA [None]
  - FEELING ABNORMAL [None]
  - FLUID RETENTION [None]
  - HOT FLUSH [None]
  - JAUNDICE [None]
  - MIDDLE INSOMNIA [None]
  - MIGRAINE [None]
  - OEDEMA PERIPHERAL [None]
  - PARAESTHESIA [None]
  - PERICARDIAL EFFUSION [None]
  - PNEUMONIA [None]
  - RESPIRATORY FAILURE [None]
  - STOMATITIS [None]
  - SWELLING [None]
